FAERS Safety Report 7502715-5 (Version None)
Quarter: 2011Q2

REPORT INFORMATION
  Report Type: 
  Country: None (occurrence: None)
  Receive Date: 20110525
  Receipt Date: 20110524
  Transmission Date: 20111010
  Serious: Yes (Death, Hospitalization, Disabling)
  Sender: FDA-Public Use
  Company Number: PHHO2011FR04232

PATIENT
  Sex: Male
  Weight: 76 kg

DRUGS (5)
  1. TASIGNA [Suspect]
     Dosage: UNK
     Dates: start: 20110107, end: 20110113
  2. HYPERIUM [Concomitant]
  3. TASIGNA [Suspect]
     Indication: CHRONIC MYELOID LEUKAEMIA
     Dosage: 300 MG, BID
     Route: 048
     Dates: start: 20101019, end: 20110106
  4. TASIGNA [Suspect]
     Dosage: 300 MG, BID
     Route: 048
     Dates: start: 20110114, end: 20110127
  5. TASIGNA [Suspect]
     Dosage: 150 MG, BID
     Route: 048
     Dates: start: 20110128, end: 20110214

REACTIONS (10)
  - MUSCULAR WEAKNESS [None]
  - GENERAL PHYSICAL HEALTH DETERIORATION [None]
  - METASTASES TO BONE [None]
  - METASTASES TO LIVER [None]
  - DEATH [None]
  - CHRONIC MYELOID LEUKAEMIA [None]
  - MYALGIA [None]
  - ADENOCARCINOMA [None]
  - POLYNEUROPATHY [None]
  - METASTASES TO SPLEEN [None]
